FAERS Safety Report 11195561 (Version 1)
Quarter: 2015Q2

REPORT INFORMATION
  Report Type: Spontaneous
  Country: US (occurrence: None)
  Receive Date: 20150615
  Receipt Date: 20150615
  Transmission Date: 20150821
  Serious: Yes (Death, Life-Threatening, Hospitalization, Disabling)
  Sender: FDA-Public Use
  Company Number: None

PATIENT
  Age: 9 Year
  Sex: Female

DRUGS (3)
  1. FLUORINE POISONED WATER [Concomitant]
  2. COLGATE FLUORIDE WHITENING - REVIVING MINT [Suspect]
     Active Substance: SODIUM FLUORIDE
     Indication: DENTAL CARIES
     Dosage: 10 PEA SIZED AMOUNTS APPLIED UNDER TONGUE AND MUCOUS MEMBRANE
  3. COLGATE FLUORIDE WHITENING - REVIVING MINT [Suspect]
     Active Substance: SODIUM FLUORIDE
     Indication: PROPHYLAXIS
     Dosage: 10 PEA SIZED AMOUNTS APPLIED UNDER TONGUE AND MUCOUS MEMBRANE

REACTIONS (1)
  - Bone cancer [None]
